FAERS Safety Report 23403900 (Version 1)
Quarter: 2024Q1

REPORT INFORMATION
  Report Type: Report from Study
  Country: GR (occurrence: CA)
  Receive Date: 20240116
  Receipt Date: 20240116
  Transmission Date: 20240410
  Serious: Yes (Other)
  Sender: FDA-Public Use
  Company Number: GR-JNJFOC-20240118607

PATIENT

DRUGS (2)
  1. REMICADE [Suspect]
     Active Substance: INFLIXIMAB
     Indication: Crohn^s disease
     Route: 041
  2. VEDOLIZUMAB [Suspect]
     Active Substance: VEDOLIZUMAB
     Indication: Crohn^s disease
     Route: 065

REACTIONS (6)
  - Lower respiratory tract infection [Unknown]
  - Gastrointestinal infection [Unknown]
  - Rash [Unknown]
  - Infectious mononucleosis [Unknown]
  - Dizziness [Unknown]
  - Therapeutic product effect decreased [Unknown]
